FAERS Safety Report 6088591-9 (Version None)
Quarter: 2009Q1

REPORT INFORMATION
  Report Type: 
  Country: None (occurrence: None)
  Receive Date: 20090224
  Receipt Date: 20090212
  Transmission Date: 20090719
  Serious: Yes (Hospitalization)
  Sender: FDA-Public Use
  Company Number: NL-BIOGENIDEC-2009BI004525

PATIENT
  Age: 42 Year
  Sex: Male

DRUGS (2)
  1. TYSABRI [Suspect]
     Indication: MULTIPLE SCLEROSIS
     Route: 042
     Dates: start: 20070629, end: 20081031
  2. SYMMETREL [Concomitant]
     Indication: FATIGUE

REACTIONS (7)
  - ABSCESS [None]
  - APPENDICITIS [None]
  - CARCINOID TUMOUR OF THE APPENDIX [None]
  - ILEUS PARALYTIC [None]
  - SEPSIS [None]
  - SURGICAL PROCEDURE REPEATED [None]
  - SUTURE RUPTURE [None]
